FAERS Safety Report 9835612 (Version 1)
Quarter: 2014Q1

REPORT INFORMATION
  Report Type: Spontaneous
  Country: TR (occurrence: TR)
  Receive Date: 20140122
  Receipt Date: 20140122
  Transmission Date: 20141002
  Serious: Yes (Life-Threatening, Hospitalization)
  Sender: FDA-Public Use
  Company Number: TR-ROXANE LABORATORIES, INC.-2014-RO-00069RO

PATIENT
  Age: 74 Year
  Sex: Female

DRUGS (4)
  1. METHOTREXATE [Suspect]
     Indication: RHEUMATOID ARTHRITIS
  2. PHENYRAMIDOL HYDROCHLORIDE [Concomitant]
     Indication: PAIN
     Dosage: 200 MG
  3. TELMISARTAN [Concomitant]
     Indication: HYPERTENSION
     Dosage: 80 MG
  4. LEVOTHYROXINE [Concomitant]
     Indication: AUTOIMMUNE THYROIDITIS
     Dosage: 100 MG

REACTIONS (5)
  - Bone tuberculosis [Recovered/Resolved]
  - Hypercalcaemia [Recovered/Resolved]
  - Drug level above therapeutic [Recovered/Resolved]
  - Pancytopenia [Recovered/Resolved]
  - Renal failure [Recovered/Resolved]
